FAERS Safety Report 16544921 (Version 1)
Quarter: 2019Q3

REPORT INFORMATION
  Report Type: Spontaneous
  Country: DE (occurrence: DE)
  Receive Date: 20190709
  Receipt Date: 20190709
  Transmission Date: 20191004
  Serious: Yes (Other)
  Sender: FDA-Public Use
  Company Number: DE-CHIESI USA, INC.-DE-2019CHI000272

PATIENT

DRUGS (2)
  1. CANGRELOR [Suspect]
     Active Substance: CANGRELOR
     Indication: ACUTE MYOCARDIAL INFARCTION
     Dosage: UNK
     Route: 065
  2. CANGRELOR [Suspect]
     Active Substance: CANGRELOR
     Indication: OFF LABEL USE

REACTIONS (2)
  - Off label use [Unknown]
  - Eye haemorrhage [Unknown]

NARRATIVE: CASE EVENT DATE: 20190618
